FAERS Safety Report 9594283 (Version 1)
Quarter: 2013Q3

REPORT INFORMATION
  Report Type: Spontaneous
  Country: US (occurrence: None)
  Receive Date: 20130923
  Receipt Date: 20130923
  Transmission Date: 20140515
  Serious: Yes (Other)
  Sender: FDA-Public Use
  Company Number: 2013STPI000277

PATIENT
  Age: 57 Year
  Sex: Female
  Weight: 72.6 kg

DRUGS (13)
  1. MATULANE [Suspect]
     Indication: LYMPHOMA
     Route: 048
     Dates: start: 201304
  2. DEXAMETHASONE (DEXAMETHASONE SODIUM PHOSPHATE) [Concomitant]
  3. PEPCID (FAMOTIDINE) [Concomitant]
  4. CEENU (LOMUSTINE) [Concomitant]
  5. PROCHLORPERAZINE (PROCHLORPERIDE MALEATE) [Concomitant]
  6. ZOFRAN (ONDANSETRON HYDROCHLORIDE) [Concomitant]
  7. ANTIVERT (MECLOZINE HYDROCHLORIDE) [Concomitant]
  8. TYLENOL (PARACETAMOL) [Concomitant]
  9. KEPPRA (LEVETIRACETAMOL) [Concomitant]
  10. PERCOCET (OXYCODONE HYDROCHLORIDE , PARACETAMOL) [Concomitant]
  11. COLACE [Concomitant]
  12. FOLIC ACID (FOLIC ACID) [Concomitant]
  13. B-COMPLEX (VITAMIN B COMPLEX) [Concomitant]

REACTIONS (2)
  - Neutropenia [None]
  - Abdominal pain [None]
